FAERS Safety Report 25648757 (Version 2)
Quarter: 2025Q3

REPORT INFORMATION
  Report Type: Spontaneous
  Country: EU (occurrence: EU)
  Receive Date: 20250806
  Receipt Date: 20250822
  Transmission Date: 20251021
  Serious: Yes (Other)
  Sender: TEVA
  Company Number: EU-TEVA-VS-3359029

PATIENT
  Age: 23 Year
  Sex: Female

DRUGS (10)
  1. CYCLOSPORINE [Suspect]
     Active Substance: CYCLOSPORINE
     Indication: Immunosuppressant drug therapy
     Route: 065
  2. MYCOPHENOLATE MOFETIL [Suspect]
     Active Substance: MYCOPHENOLATE MOFETIL
     Indication: Immunosuppressant drug therapy
     Route: 065
  3. IDARUBICIN [Suspect]
     Active Substance: IDARUBICIN
     Indication: Bone marrow conditioning regimen
     Route: 065
  4. VENETOCLAX [Suspect]
     Active Substance: VENETOCLAX
     Indication: Bone marrow conditioning regimen
     Dosage: ON DAYS 1-5
     Route: 065
  5. CYCLOPHOSPHAMIDE [Suspect]
     Active Substance: CYCLOPHOSPHAMIDE
     Indication: Bone marrow conditioning regimen
     Route: 065
  6. BUSULFAN [Suspect]
     Active Substance: BUSULFAN
     Indication: Bone marrow conditioning regimen
     Route: 065
  7. FLUDARABINE [Suspect]
     Active Substance: FLUDARABINE PHOSPHATE
     Indication: Bone marrow conditioning regimen
     Route: 065
  8. FLUDARABINE [Suspect]
     Active Substance: FLUDARABINE PHOSPHATE
     Indication: Bone marrow conditioning regimen
     Route: 065
  9. CYTARABINE [Suspect]
     Active Substance: CYTARABINE
     Indication: Bone marrow conditioning regimen
     Route: 065
  10. DECITABINE [Suspect]
     Active Substance: DECITABINE
     Indication: Bone marrow conditioning regimen
     Dosage: ON DAYS 1-5
     Route: 065

REACTIONS (5)
  - Pneumonia [Unknown]
  - Off label use [Unknown]
  - Mucosal inflammation [Unknown]
  - Sepsis [Unknown]
  - Palmar-plantar erythrodysaesthesia syndrome [Unknown]
